FAERS Safety Report 21097950 (Version 4)
Quarter: 2022Q3

REPORT INFORMATION
  Report Type: Spontaneous
  Country: FR (occurrence: FR)
  Receive Date: 20220719
  Receipt Date: 20220914
  Transmission Date: 20221027
  Serious: Yes (Hospitalization, Other)
  Sender: FDA-Public Use
  Company Number: FR-AFSSAPS-NY20221945

PATIENT
  Age: 57 Year
  Sex: Female

DRUGS (6)
  1. CLOZAPINE [Interacting]
     Active Substance: CLOZAPINE
     Indication: Schizophrenia
     Dosage: 300 MG MORNING 300 MG EVENING
     Route: 048
     Dates: end: 20220621
  2. TOBACCO LEAF [Interacting]
     Active Substance: TOBACCO LEAF
     Indication: Nicotine dependence
     Dosage: 10 DOSAGE FORM, ONCE A DAY, (10 CIGARETTES / D)
  3. ATARAX [Concomitant]
     Active Substance: HYDROXYZINE HYDROCHLORIDE
     Indication: Schizophrenia
     Dosage: UNK
     Route: 048
  4. ESOMEPRAZOLE [Concomitant]
     Active Substance: ESOMEPRAZOLE
     Indication: Product used for unknown indication
     Dosage: UNK
     Route: 048
  5. TROPATEPINE HYDROCHLORIDE [Concomitant]
     Active Substance: TROPATEPINE HYDROCHLORIDE
     Indication: Symptomatic treatment
     Dosage: UNK
     Route: 048
  6. ZOPICLONE [Concomitant]
     Active Substance: ZOPICLONE
     Indication: Insomnia
     Dosage: UNK
     Route: 048

REACTIONS (3)
  - Seizure [Recovered/Resolved]
  - Antipsychotic drug level above therapeutic [Not Recovered/Not Resolved]
  - Tobacco interaction [Not Recovered/Not Resolved]

NARRATIVE: CASE EVENT DATE: 20220601
